FAERS Safety Report 16131676 (Version 1)
Quarter: 2019Q1

REPORT INFORMATION
  Report Type: Spontaneous
  Country: PT (occurrence: PT)
  Receive Date: 20190329
  Receipt Date: 20190329
  Transmission Date: 20190418
  Serious: Yes (Death, Other)
  Sender: FDA-Public Use
  Company Number: PT-SUN PHARMACEUTICAL INDUSTRIES LTD-2019R1-203011

PATIENT
  Age: 30 Year
  Sex: Female

DRUGS (12)
  1. PREDNISOLONE. [Suspect]
     Active Substance: PREDNISOLONE
     Indication: METASTASES TO LYMPH NODES
  2. OCTREOTIDE. [Suspect]
     Active Substance: OCTREOTIDE
     Indication: METASTASES TO LYMPH NODES
     Dosage: 30 MILLIGRAM EVERY 4-WEEKS
     Route: 030
  3. OCTREOTIDE. [Suspect]
     Active Substance: OCTREOTIDE
     Indication: METASTASES TO LYMPH NODES
  4. DIAZOXIDE [Suspect]
     Active Substance: DIAZOXIDE
     Indication: INSULINOMA
     Dosage: 250 MILLIGRAM, DAILY
     Route: 065
  5. DIAZOXIDE [Suspect]
     Active Substance: DIAZOXIDE
     Indication: METASTASES TO LYMPH NODES
     Dosage: UNK (DECREASED DOSE)
     Route: 065
  6. OCTREOTIDE. [Suspect]
     Active Substance: OCTREOTIDE
     Indication: METASTASES TO LIVER
  7. OCTREOTIDE. [Suspect]
     Active Substance: OCTREOTIDE
     Indication: INSULINOMA
     Dosage: 20 MILLIGRAM EVERY 4-WEEKS
     Route: 030
  8. PREDNISOLONE. [Suspect]
     Active Substance: PREDNISOLONE
     Indication: INSULINOMA
     Dosage: 20 MILLIGRAM, DAILY
     Route: 065
  9. OCTREOTIDE. [Suspect]
     Active Substance: OCTREOTIDE
     Indication: INSULINOMA
     Dosage: 100 MICROGRAM, TID
     Route: 058
  10. OCTREOTIDE. [Suspect]
     Active Substance: OCTREOTIDE
     Indication: METASTASES TO LIVER
  11. DIAZOXIDE [Suspect]
     Active Substance: DIAZOXIDE
     Indication: METASTASES TO LIVER
     Dosage: 350 MILLIGRAM, DAILY
     Route: 065
  12. PREDNISOLONE. [Suspect]
     Active Substance: PREDNISOLONE
     Indication: METASTASES TO LIVER

REACTIONS (3)
  - Drug ineffective [Fatal]
  - Hypoglycaemia [Unknown]
  - Condition aggravated [Not Recovered/Not Resolved]
